FAERS Safety Report 9921179 (Version 1)
Quarter: 2014Q1

REPORT INFORMATION
  Report Type: Report from Study
  Country: US (occurrence: US)
  Receive Date: 20140225
  Receipt Date: 20140225
  Transmission Date: 20141002
  Serious: Yes (Other)
  Sender: FDA-Public Use
  Company Number: US-ROCHE-1338438

PATIENT
  Sex: Female
  Weight: 42.22 kg

DRUGS (14)
  1. LUCENTIS [Suspect]
     Indication: AGE-RELATED MACULAR DEGENERATION
     Dosage: OS
     Route: 050
     Dates: start: 20101018
  2. AVASTIN [Suspect]
     Indication: PRODUCT USED FOR UNKNOWN INDICATION
     Route: 065
     Dates: start: 20070725
  3. CALCIUM ACETATE [Concomitant]
  4. ERYTHROMYCIN [Concomitant]
     Dosage: 5 MG/ML APPLY A SMALL AMOUNT
     Route: 047
  5. SYSTANE [Concomitant]
     Dosage: PRN OU
     Route: 065
  6. VESICARE [Concomitant]
  7. VITAMIN B12 [Concomitant]
  8. VITAMIN B6 [Concomitant]
  9. VITAMIN C [Concomitant]
  10. OCUFLOX [Concomitant]
     Dosage: X 4 DAYS
     Route: 047
     Dates: start: 20100811
  11. ZYMAR [Concomitant]
     Dosage: X 4 DAYS
     Route: 047
     Dates: start: 20090309
  12. PHENYLEPHRINE [Concomitant]
     Dosage: OU
     Route: 065
  13. TROPICAMIDE [Concomitant]
     Dosage: OU
     Route: 065
  14. PROPARACAINE [Concomitant]
     Dosage: OU
     Route: 065

REACTIONS (10)
  - Blepharitis [Unknown]
  - Detachment of retinal pigment epithelium [Unknown]
  - Depression [Unknown]
  - Anxiety [Unknown]
  - Musculoskeletal stiffness [Unknown]
  - Back pain [Unknown]
  - Memory impairment [Unknown]
  - Erythema [Unknown]
  - Cataract nuclear [Unknown]
  - Dry eye [Unknown]
